FAERS Safety Report 7488922-9 (Version None)
Quarter: 2011Q2

REPORT INFORMATION
  Report Type: 
  Country: None (occurrence: None)
  Receive Date: 20110518
  Receipt Date: 20110506
  Transmission Date: 20111010
  Serious: Yes (Disabling)
  Sender: FDA-Public Use
  Company Number: HU-UCBSA-032348

PATIENT
  Sex: Female
  Weight: 108 kg

DRUGS (1)
  1. CIMZIA [Suspect]
     Indication: RHEUMATOID ARTHRITIS
     Route: 058
     Dates: start: 20101231, end: 20110305

REACTIONS (1)
  - ERYTHEMA MULTIFORME [None]
